FAERS Safety Report 9720077 (Version 1)
Quarter: 2013Q4

REPORT INFORMATION
  Report Type: Spontaneous
  Country: US (occurrence: US)
  Receive Date: 20131128
  Receipt Date: 20131128
  Transmission Date: 20140711
  Serious: No
  Sender: FDA-Public Use
  Company Number: US-009507513-1310USA015136

PATIENT
  Sex: Female

DRUGS (1)
  1. NEXPLANON [Suspect]
     Dosage: UNK
     Route: 059
     Dates: start: 20130829

REACTIONS (12)
  - Device breakage [Unknown]
  - Device kink [Unknown]
  - Device difficult to use [Unknown]
  - Device difficult to use [Unknown]
  - Device difficult to use [Unknown]
  - Adverse event [Unknown]
  - Medical device complication [Unknown]
  - Sinusitis [Unknown]
  - Medical device complication [Unknown]
  - Medical device complication [Unknown]
  - Device difficult to use [Unknown]
  - Device difficult to use [Unknown]
